FAERS Safety Report 7287271-1 (Version None)
Quarter: 2011Q1

REPORT INFORMATION
  Report Type: 
  Country: None (occurrence: None)
  Receive Date: 20110211
  Receipt Date: 20110127
  Transmission Date: 20110831
  Serious: Yes (Hospitalization, Other)
  Sender: FDA-Public Use
  Company Number: US-CELGENEUS-163-21880-11010031

PATIENT
  Sex: Female

DRUGS (5)
  1. COUMADIN [Concomitant]
     Dosage: 2.5-5MG
     Route: 065
  2. ATIVAN [Concomitant]
     Indication: ANXIETY
     Route: 048
  3. REVLIMID [Suspect]
     Indication: MYELODYSPLASTIC SYNDROME
     Route: 048
     Dates: start: 20101206
  4. TYLENOL-500 [Concomitant]
     Route: 065
  5. DILTIAZEM [Concomitant]
     Route: 065

REACTIONS (6)
  - PNEUMONIA [None]
  - HYPERBILIRUBINAEMIA [None]
  - HYPOKALAEMIA [None]
  - FULL BLOOD COUNT DECREASED [None]
  - HYPOTENSION [None]
  - INTERNATIONAL NORMALISED RATIO INCREASED [None]
